FAERS Safety Report 15600721 (Version 1)
Quarter: 2018Q4

REPORT INFORMATION
  Report Type: Spontaneous
  Country: US (occurrence: US)
  Receive Date: 20181109
  Receipt Date: 20181109
  Transmission Date: 20190205
  Serious: No
  Sender: FDA-Public Use
  Company Number: US-009507513-1811USA001741

PATIENT
  Sex: Female

DRUGS (1)
  1. NEXPLANON [Suspect]
     Active Substance: ETONOGESTREL
     Indication: CONTRACEPTION
     Dosage: 68MG, ROD
     Route: 059
     Dates: start: 201810

REACTIONS (2)
  - Implant site bruising [Unknown]
  - Administration site discomfort [Unknown]

NARRATIVE: CASE EVENT DATE: 2018
